FAERS Safety Report 8258434-3 (Version None)
Quarter: 2012Q2

REPORT INFORMATION
  Report Type: 
  Country: None (occurrence: None)
  Receive Date: 20120404
  Receipt Date: 20120325
  Transmission Date: 20120825
  Serious: Yes (Death)
  Sender: FDA-Public Use
  Company Number: US-BAYER-2012-029676

PATIENT
  Sex: Female

DRUGS (7)
  1. IBUPROFEN [Suspect]
  2. FLEXERIL [Suspect]
  3. ALEVE (CAPLET) [Suspect]
     Route: 048
  4. MARIJUANA [Suspect]
  5. COCAINE [Suspect]
  6. BENADRYL [Suspect]
  7. XANAX [Suspect]

REACTIONS (2)
  - DROWNING [None]
  - MYOCARDIAL INFARCTION [None]
